FAERS Safety Report 5569559-5 (Version None)
Quarter: 2007Q4

REPORT INFORMATION
  Report Type: 
  Country: None (occurrence: None)
  Receive Date: 20071220
  Receipt Date: 20071207
  Transmission Date: 20080405
  Serious: Yes (Death, Life-Threatening, Other)
  Sender: FDA-Public Use
  Company Number: GB-RANBAXY-2007RR-12015

PATIENT

DRUGS (11)
  1. DISPERSIBLE ASPIRIN 75MG TABLETS BP [Suspect]
     Dosage: 75 MG, UNK
     Route: 048
     Dates: start: 20060324
  2. IBUPROFEN TABLETS BP 600MG [Suspect]
     Dosage: 1200 MG, UNK
     Route: 048
     Dates: end: 20071023
  3. CHLORPROMAZINE 100MG TABLETS BP [Concomitant]
     Dosage: 400 MG, UNK
     Route: 048
     Dates: start: 19951120
  4. CO-CODAMOL [Concomitant]
     Dosage: UNK
     Route: 048
     Dates: start: 20071112
  5. DIAZEPAM [Concomitant]
     Dosage: 15 MG, UNK
     Route: 048
     Dates: start: 20061206
  6. DOSULEPIN [Concomitant]
     Dosage: 125 MG, UNK
     Route: 048
     Dates: start: 20061027
  7. FLUPHENAZINE DECANOATE [Concomitant]
     Dosage: 100 MG, UNK
     Route: 030
     Dates: start: 20030123
  8. LANSOPRAZOLE 30 MG GASTRO-RESISTANT CAPSULES [Concomitant]
     Dosage: 30 MG, UNK
     Route: 048
     Dates: start: 20071023
  9. LEVOTHYROXINE SODIUM [Concomitant]
     Dosage: 75 UG, UNK
     Route: 048
     Dates: start: 20040101
  10. PROCYCLIDINE HYDROCHLORIDE 2MG TAB [Concomitant]
     Dosage: 15 MG, UNK
     Route: 048
     Dates: start: 20071115
  11. QUININE SULPHATE TABLETS [Concomitant]
     Dosage: 300 MG, UNK
     Route: 048
     Dates: start: 20070806

REACTIONS (2)
  - GASTROINTESTINAL HAEMORRHAGE [None]
  - PERFORATED ULCER [None]
